FAERS Safety Report 12609421 (Version 2)
Quarter: 2016Q3

REPORT INFORMATION
  Report Type: Spontaneous
  Country: US (occurrence: US)
  Receive Date: 20160801
  Receipt Date: 20160826
  Transmission Date: 20161109
  Serious: No
  Sender: FDA-Public Use
  Company Number: US-ASTRAZENECA-2016SE80152

PATIENT
  Age: 75 Year
  Sex: Female
  Weight: 106.6 kg

DRUGS (6)
  1. VITAMIN B12 [Concomitant]
     Active Substance: CYANOCOBALAMIN
     Route: 048
  2. BLACK COHOSH [Concomitant]
     Active Substance: BLACK COHOSH
     Indication: NIGHT SWEATS
  3. TUDORZA PRESSAIR [Suspect]
     Active Substance: ACLIDINIUM BROMIDE
     Indication: DYSPNOEA
     Dosage: 400.0UG UNKNOWN
     Route: 055
     Dates: start: 2016
  4. POTASSIUM [Concomitant]
     Active Substance: POTASSIUM
     Route: 048
  5. BABY ASPIRIN [Concomitant]
     Active Substance: ASPIRIN
     Route: 048
  6. FISH OIL [Concomitant]
     Active Substance: FISH OIL
     Route: 048

REACTIONS (4)
  - Device malfunction [Unknown]
  - Dyspnoea [Not Recovered/Not Resolved]
  - Fatigue [Not Recovered/Not Resolved]
  - Intentional product misuse [Unknown]

NARRATIVE: CASE EVENT DATE: 2016
